FAERS Safety Report 11474802 (Version 1)
Quarter: 2015Q3

REPORT INFORMATION
  Report Type: Spontaneous
  Country: US (occurrence: None)
  Receive Date: 20150902
  Receipt Date: 20150902
  Transmission Date: 20151125
  Serious: Yes (Hospitalization)
  Sender: FDA-Public Use
  Company Number: A-US2014-109492

PATIENT
  Age: 47 Year
  Sex: Female

DRUGS (10)
  1. SPIRONOLACTONE. [Concomitant]
     Active Substance: SPIRONOLACTONE
  2. FOLIC ACID. [Concomitant]
     Active Substance: FOLIC ACID
  3. DIGOXIN. [Concomitant]
     Active Substance: DIGOXIN
  4. NIASPAN (NICOTINIC ACID) [Concomitant]
  5. WARFARIN [Concomitant]
     Active Substance: WARFARIN
  6. VELETRI [Suspect]
     Active Substance: EPOPROSTENOL
     Indication: PULMONARY ARTERIAL HYPERTENSION
     Route: 042
     Dates: start: 20140728
  7. LETAIRIS [Concomitant]
     Active Substance: AMBRISENTAN
  8. SIMVASTATIN. [Concomitant]
     Active Substance: SIMVASTATIN
  9. ADCIRCA [Concomitant]
     Active Substance: TADALAFIL
  10. ASPIRIN. [Concomitant]
     Active Substance: ASPIRIN

REACTIONS (4)
  - Dyspnoea [None]
  - Pulmonary arterial hypertension [None]
  - Condition aggravated [None]
  - Dyspnoea exertional [None]
